FAERS Safety Report 5562767-9 (Version None)
Quarter: 2007Q4

REPORT INFORMATION
  Report Type: 
  Country: None (occurrence: None)
  Receive Date: 20071211
  Receipt Date: 20071211
  Transmission Date: 20080405
  Serious: Yes (Death)
  Sender: FDA-Public Use
  Company Number: None

PATIENT
  Age: 52 Year
  Sex: Male
  Weight: 104.3273 kg

DRUGS (1)
  1. ACTOPLUS MET [Suspect]
     Indication: LIPIDS ABNORMAL
     Dosage: 1 TABLET  ONCE DAILY  PO
     Route: 048
     Dates: start: 20061208, end: 20070315

REACTIONS (2)
  - ILL-DEFINED DISORDER [None]
  - RESPIRATORY ARREST [None]
